FAERS Safety Report 8339595-4 (Version None)
Quarter: 2012Q2

REPORT INFORMATION
  Report Type: 
  Country: None (occurrence: None)
  Receive Date: 20120507
  Receipt Date: 20110812
  Transmission Date: 20120825
  Serious: No
  Sender: FDA-Public Use
  Company Number: US-TEVA-2011002685

PATIENT
  Sex: Female
  Weight: 122.58 kg

DRUGS (22)
  1. NUVIGIL [Suspect]
     Indication: NARCOLEPSY
     Route: 048
     Dates: start: 20100101, end: 20100101
  2. INTAL [Concomitant]
  3. LEVOTHYROXINE SODIUM [Concomitant]
  4. NOVOLOG [Concomitant]
  5. ANTIVERT [Concomitant]
  6. NUVIGIL [Suspect]
     Route: 048
     Dates: start: 20100101, end: 20100101
  7. PROVENTIL [Concomitant]
  8. IMDUR [Concomitant]
  9. MAGNESIUM OXIDE [Concomitant]
  10. FLUTICASONE FUROATE [Concomitant]
  11. LANTUS [Concomitant]
  12. SINGULAIR [Concomitant]
  13. VYTORIN [Concomitant]
  14. ACIPHEX [Concomitant]
  15. CLOTRIMAZOLE [Concomitant]
  16. NUVIGIL [Suspect]
     Route: 048
     Dates: start: 20100101, end: 20100101
  17. ADVAIR DISKUS 100/50 [Concomitant]
  18. SPIRIVA [Concomitant]
  19. DICYCLOMINE [Concomitant]
  20. BENICAR [Concomitant]
  21. LASIX [Concomitant]
  22. COUMADIN [Concomitant]

REACTIONS (4)
  - PALPITATIONS [None]
  - DIZZINESS [None]
  - DYSPEPSIA [None]
  - FATIGUE [None]
